FAERS Safety Report 8766780 (Version 2)
Quarter: 2012Q4

REPORT INFORMATION
  Report Type: 
  Country: US (occurrence: US)
  Receive Date: 20120831
  Receipt Date: 20120928
  Transmission Date: 20130627
  Serious: Yes (Hospitalization)
  Sender: FDA-Public Use
  Company Number: US-ASTELLAS-2012US007325

PATIENT
  Age: 67 Year
  Sex: Female
  Weight: 91 kg

DRUGS (7)
  1. VESICARE [Suspect]
     Indication: HYPERTONIC BLADDER
     Dosage: 5 mg, UID/QD
     Route: 048
  2. EFFEXOR XR [Concomitant]
     Indication: ANXIETY
     Dosage: 75 mg, UID/QD
     Route: 048
  3. PANTOPRAZOLE [Concomitant]
     Indication: GASTRIC DISORDER
     Dosage: 40 mg, UID/QD
     Route: 048
  4. NEURONTIN [Concomitant]
     Indication: FACIAL NEURALGIA
     Dosage: 400 mg, UID/QD
     Route: 048
  5. TEGRETOL [Concomitant]
     Indication: FACIAL PAIN
     Dosage: 200 mg, UID/QD
     Route: 048
  6. VASOTEC                            /00574902/ [Concomitant]
     Indication: BLOOD PRESSURE
     Dosage: 10 mg, UID/QD
     Route: 048
  7. ESTRADIOL [Concomitant]
     Indication: HORMONE THERAPY
     Dosage: 1 mg, UID/QD
     Route: 048

REACTIONS (1)
  - Bronchitis [Unknown]
